FAERS Safety Report 10086149 (Version 1)
Quarter: 2014Q2

REPORT INFORMATION
  Report Type: Spontaneous
  Country: US (occurrence: US)
  Receive Date: 20140418
  Receipt Date: 20140418
  Transmission Date: 20141212
  Serious: No
  Sender: FDA-Public Use
  Company Number: US-B.I. PHARMACEUTICALS,INC./RIDGEFIELD-2014-BI-16705BP

PATIENT
  Age: 67 Year
  Sex: Male
  Weight: 77 kg

DRUGS (12)
  1. COMBIVENT [Suspect]
     Indication: ASTHMA
     Dosage: FORMULATION: RESPIMAT INHALATION SPRAY STRENGTH: 20 MCG / 100 MCG; DAILY DOSE: 80 MCG/ 400 MCG
     Route: 055
     Dates: start: 201403
  2. ALBUTEROL MDI [Concomitant]
     Indication: ASTHMA
     Dosage: (INHALATION AEROSOL)
     Route: 055
  3. ALLEGRA [Concomitant]
     Indication: ASTHMA
     Route: 048
  4. DULERA INHALER [Concomitant]
     Indication: ASTHMA
     Dosage: FORMULATION: (INHALATION AEROSOL) STRENGTH: 200 MCG/ 5  MCG; DAILY DOSE: 400 MCG/ 10 MCG
     Route: 055
  5. ACIPHEX [Concomitant]
     Indication: GASTROOESOPHAGEAL REFLUX DISEASE
     Dosage: 20 MG
     Route: 048
  6. DIOVAN [Concomitant]
     Indication: HYPERTENSION
     Dosage: 320 MG
     Route: 048
  7. PLENDIL ER [Concomitant]
     Indication: HYPERTENSION
     Dosage: 5 MG
     Route: 048
  8. XYZAL [Concomitant]
     Indication: ASTHMA
     Dosage: 5 MG
     Route: 048
  9. ZYRTEC [Concomitant]
     Indication: ASTHMA
     Dosage: 10 MG
     Route: 048
  10. ZESTRIL [Concomitant]
     Indication: HYPERTENSION
     Dosage: 10 MG
     Route: 048
  11. GENTAMICIN SULFATE SOLUTION [Concomitant]
     Indication: CHRONIC SINUSITIS
     Dosage: FORMULATION: (NASAL SPRAY)
     Route: 045
  12. PULMOCORT COMPOUND SOLUTION [Concomitant]
     Indication: CHRONIC SINUSITIS
     Dosage: 1.2 MG
     Route: 045

REACTIONS (10)
  - Asthma [Recovered/Resolved]
  - Throat irritation [Not Recovered/Not Resolved]
  - Dyspnoea [Recovered/Resolved]
  - Speech disorder [Recovered/Resolved]
  - Nasal congestion [Not Recovered/Not Resolved]
  - Cough [Not Recovered/Not Resolved]
  - Dysphonia [Not Recovered/Not Resolved]
  - Cough [Not Recovered/Not Resolved]
  - Lung infection [Not Recovered/Not Resolved]
  - Off label use [Not Recovered/Not Resolved]
